FAERS Safety Report 7509073-0 (Version None)
Quarter: 2011Q2

REPORT INFORMATION
  Report Type: 
  Country: None (occurrence: None)
  Receive Date: 20110527
  Receipt Date: 20110513
  Transmission Date: 20111010
  Serious: Yes (Other)
  Sender: FDA-Public Use
  Company Number: CA-JNJFOC-20110507292

PATIENT
  Sex: Male
  Weight: 80.2 kg

DRUGS (7)
  1. REMICADE [Suspect]
     Route: 042
     Dates: start: 20110308
  2. METFORMIN HCL [Concomitant]
     Route: 048
  3. JANUVIA [Concomitant]
     Dosage: 100MG ^OD^
     Route: 048
  4. DIOVAN [Concomitant]
     Route: 065
  5. IMURAN [Concomitant]
     Dosage: 3 TABS ^OD^
     Route: 048
  6. REMICADE [Suspect]
     Indication: COLITIS ULCERATIVE
     Route: 042
     Dates: start: 20090714
  7. CYMBALTA [Concomitant]
     Route: 065

REACTIONS (1)
  - LIGAMENT RUPTURE [None]
